FAERS Safety Report 16539137 (Version 3)
Quarter: 2019Q3

REPORT INFORMATION
  Report Type: Spontaneous
  Country: US (occurrence: US)
  Receive Date: 20190708
  Receipt Date: 20190912
  Transmission Date: 20191004
  Serious: Yes (Life-Threatening, Hospitalization, Disabling)
  Sender: FDA-Public Use
  Company Number: US-PFIZER INC-2019287083

PATIENT
  Age: 53 Year
  Sex: Male
  Weight: 79 kg

DRUGS (1)
  1. VIAGRA [Suspect]
     Active Substance: SILDENAFIL CITRATE
     Indication: ERECTILE DYSFUNCTION
     Dosage: 100 MG, AS NEEDED (ONLY TOOK IT WHEN SEXUALLY ACTIVE)
     Dates: start: 2017, end: 2017

REACTIONS (2)
  - Pharyngeal injury [Recovered/Resolved]
  - Mental disorder [Not Recovered/Not Resolved]

NARRATIVE: CASE EVENT DATE: 20181129
